FAERS Safety Report 4470913-3 (Version None)
Quarter: 2004Q4

REPORT INFORMATION
  Report Type: 
  Country: None (occurrence: None)
  Receive Date: 20041011
  Receipt Date: 20030605
  Transmission Date: 20050328
  Serious: Yes (Other)
  Sender: FDA-Public Use
  Company Number: US-MERCK-0306USA00741

PATIENT
  Sex: Male

DRUGS (7)
  1. ASPIRIN [Concomitant]
     Route: 065
  2. CALCIUM (UNSPECIFIED) [Concomitant]
     Route: 065
  3. DIGOXIN [Concomitant]
     Route: 065
  4. FOLIC ACID [Concomitant]
     Route: 065
  5. CLARITIN [Concomitant]
     Route: 065
  6. PRAVACHOL [Concomitant]
     Route: 065
  7. VIOXX [Suspect]
     Route: 048

REACTIONS (6)
  - ADVERSE EVENT [None]
  - ANGINA PECTORIS [None]
  - BLOOD PRESSURE INCREASED [None]
  - CONVULSION [None]
  - INNER EAR DISORDER [None]
  - VERTIGO [None]
